FAERS Safety Report 7144415-X (Version None)
Quarter: 2010Q4

REPORT INFORMATION
  Report Type: 
  Country: None (occurrence: None)
  Receive Date: 20101208
  Receipt Date: 20100610
  Transmission Date: 20110411
  Serious: Yes (Other)
  Sender: FDA-Public Use
  Company Number: US-BAYER-201025680NA

PATIENT
  Sex: Female
  Weight: 130 kg

DRUGS (5)
  1. YAZ [Suspect]
     Route: 048
     Dates: start: 20070313, end: 20091101
  2. YAZ [Suspect]
     Route: 048
     Dates: start: 20070313, end: 20091101
  3. YASMIN [Suspect]
     Route: 048
  4. AMOXICILLIN [Concomitant]
     Route: 065
     Dates: start: 20080101, end: 20100101
  5. FOLIC ACID [Concomitant]
     Route: 065
     Dates: start: 19980101

REACTIONS (2)
  - BILE DUCT STONE [None]
  - CHOLECYSTECTOMY [None]
